APPROVED DRUG PRODUCT: CYSTADANE
Active Ingredient: BETAINE
Strength: 1GM/SCOOPFUL
Dosage Form/Route: FOR SOLUTION;ORAL
Application: N020576 | Product #001 | TE Code: AB
Applicant: RECORDATI RARE DISEASES INC
Approved: Oct 25, 1996 | RLD: Yes | RS: Yes | Type: RX